FAERS Safety Report 5703946-7 (Version None)
Quarter: 2008Q2

REPORT INFORMATION
  Report Type: 
  Country: None (occurrence: None)
  Receive Date: 20080409
  Receipt Date: 20080327
  Transmission Date: 20081010
  Serious: Yes (Hospitalization)
  Sender: FDA-Public Use
  Company Number: 2008005335

PATIENT
  Age: 27 Year
  Sex: Male

DRUGS (3)
  1. MINOXIDIL [Suspect]
     Dosage: UNSPECIFIED,TOPICAL
     Route: 061
     Dates: start: 20061001
  2. MINOXIDIL [Suspect]
     Dosage: UNSPECIFIED,TOPICAL
     Route: 061
     Dates: start: 20071101
  3. AZATHIOPRINE [Concomitant]

REACTIONS (4)
  - GASTROENTERITIS [None]
  - IDIOPATHIC THROMBOCYTOPENIC PURPURA [None]
  - MOUTH HAEMORRHAGE [None]
  - OEDEMA MUCOSAL [None]
